FAERS Safety Report 24231419 (Version 1)
Quarter: 2024Q3

REPORT INFORMATION
  Report Type: Spontaneous
  Country: CN (occurrence: CN)
  Receive Date: 20240821
  Receipt Date: 20240821
  Transmission Date: 20241017
  Serious: Yes (Other)
  Sender: DR REDDYS
  Company Number: CN-BLG-LIT/CHN/24/0011993

PATIENT
  Age: 66 Year
  Sex: Male

DRUGS (7)
  1. LENALIDOMIDE [Suspect]
     Active Substance: LENALIDOMIDE
     Indication: Diffuse large B-cell lymphoma
     Dosage: 25 MG ONCE DAILY ON DAYS 2-8.
  2. CYCLOPHOSPHAMIDE [Suspect]
     Active Substance: CYCLOPHOSPHAMIDE
     Indication: Diffuse large B-cell lymphoma
     Dosage: ONCE ON DAY 2.
  3. RITUXIMAB [Suspect]
     Active Substance: RITUXIMAB
     Indication: Diffuse large B-cell lymphoma
     Dosage: ONCE ON DAY 1.
     Route: 042
  4. DOXORUBICIN [Suspect]
     Active Substance: DOXORUBICIN
     Indication: Diffuse large B-cell lymphoma
     Dosage: ONCE ON DAY 2.
  5. VINDESINE [Suspect]
     Active Substance: VINDESINE
     Indication: Diffuse large B-cell lymphoma
     Dosage: ONCE ON DAY 2.
  6. PREDNISONE [Suspect]
     Active Substance: PREDNISONE
     Indication: Diffuse large B-cell lymphoma
     Dosage: ONCE DAILY ON DAYS 2-6.
     Route: 048
  7. ORELABRUTINIB [Suspect]
     Active Substance: ORELABRUTINIB
     Indication: Diffuse large B-cell lymphoma
     Dosage: ONCE A DAY.
     Route: 048

REACTIONS (3)
  - Neutropenia [Unknown]
  - Anaemia [Unknown]
  - Product use in unapproved indication [Unknown]
